FAERS Safety Report 7583720-X (Version None)
Quarter: 2011Q2

REPORT INFORMATION
  Report Type: 
  Country: None (occurrence: None)
  Receive Date: 20110630
  Receipt Date: 20110629
  Transmission Date: 20111010
  Serious: Yes (Hospitalization)
  Sender: FDA-Public Use
  Company Number: B0729440A

PATIENT
  Sex: Male

DRUGS (14)
  1. PREVISCAN [Concomitant]
  2. OXAZEPAM [Concomitant]
     Dosage: 50MG TWICE PER DAY
     Route: 065
  3. VALACYCLOVIR HYDROCHLORIDE [Suspect]
     Indication: PROPHYLAXIS
     Dosage: 500MG TWICE PER DAY
     Route: 048
     Dates: start: 20101101, end: 20110530
  4. FONZYLANE [Concomitant]
     Dosage: 150MG TWICE PER DAY
     Route: 065
  5. LASIX [Concomitant]
     Dosage: 40MG PER DAY
     Route: 065
  6. IMOVANE [Concomitant]
     Route: 065
  7. NEXIUM [Concomitant]
     Dosage: 40MG PER DAY
     Route: 065
  8. FLECAINIDE ACETATE [Concomitant]
     Dosage: 200MG PER DAY
     Route: 065
  9. RITUXAN [Suspect]
     Route: 042
     Dates: start: 20101101, end: 20110401
  10. BACTRIM DS [Suspect]
     Indication: PROPHYLAXIS
     Dosage: 1TAB SEE DOSAGE TEXT
     Route: 048
     Dates: start: 20101101, end: 20110530
  11. CORDARONE [Concomitant]
     Route: 065
  12. FORLAX [Concomitant]
  13. FLUDARA [Concomitant]
     Route: 065
  14. SERETIDE [Concomitant]
     Dosage: 500MCG TWICE PER DAY

REACTIONS (4)
  - LEUKOPENIA [None]
  - CHILLS [None]
  - AGRANULOCYTOSIS [None]
  - PYREXIA [None]
